FAERS Safety Report 22055844 (Version 3)
Quarter: 2023Q1

REPORT INFORMATION
  Report Type: Spontaneous
  Country: DE (occurrence: DE)
  Receive Date: 20230302
  Receipt Date: 20230314
  Transmission Date: 20230418
  Serious: Yes (Hospitalization)
  Sender: FDA-Public Use
  Company Number: DE-TEVA-2023-DE-2860775

PATIENT
  Age: 33 Year
  Sex: Female

DRUGS (31)
  1. METOCLOPRAMIDE [Suspect]
     Active Substance: METOCLOPRAMIDE
     Indication: Impaired gastric emptying
     Route: 065
  2. METOCLOPRAMIDE [Suspect]
     Active Substance: METOCLOPRAMIDE
     Indication: Nausea
  3. RISPERIDONE [Suspect]
     Active Substance: RISPERIDONE
     Indication: Tardive dyskinesia
     Route: 065
  4. RISPERIDONE [Suspect]
     Active Substance: RISPERIDONE
     Indication: Dystonia
  5. CLOZAPINE [Suspect]
     Active Substance: CLOZAPINE
     Indication: Tardive dyskinesia
     Route: 065
  6. CLOZAPINE [Suspect]
     Active Substance: CLOZAPINE
     Indication: Dystonia
  7. OLANZAPINE [Suspect]
     Active Substance: OLANZAPINE
     Indication: Tardive dyskinesia
     Route: 065
  8. OLANZAPINE [Suspect]
     Active Substance: OLANZAPINE
     Indication: Dystonia
  9. TIZANIDINE [Suspect]
     Active Substance: TIZANIDINE
     Indication: Tardive dyskinesia
     Route: 065
  10. TIZANIDINE [Suspect]
     Active Substance: TIZANIDINE
     Indication: Dystonia
  11. OXAZEPAM [Suspect]
     Active Substance: OXAZEPAM
     Indication: Tardive dyskinesia
     Route: 065
  12. OXAZEPAM [Suspect]
     Active Substance: OXAZEPAM
     Indication: Dystonia
  13. BACLOFEN [Suspect]
     Active Substance: BACLOFEN
     Indication: Tardive dyskinesia
     Route: 065
  14. BACLOFEN [Suspect]
     Active Substance: BACLOFEN
     Indication: Dystonia
  15. PIPAMPERONE [Suspect]
     Active Substance: PIPAMPERONE
     Indication: Tardive dyskinesia
     Route: 065
  16. PIPAMPERONE [Suspect]
     Active Substance: PIPAMPERONE
     Indication: Dystonia
  17. TETRABENAZINE [Suspect]
     Active Substance: TETRABENAZINE
     Indication: Tardive dyskinesia
     Route: 065
  18. TETRABENAZINE [Suspect]
     Active Substance: TETRABENAZINE
     Indication: Dystonia
  19. CLONAZEPAM [Suspect]
     Active Substance: CLONAZEPAM
     Indication: Tardive dyskinesia
     Route: 065
  20. CLONAZEPAM [Suspect]
     Active Substance: CLONAZEPAM
     Indication: Dystonia
  21. CLOBAZAM [Suspect]
     Active Substance: CLOBAZAM
     Indication: Tardive dyskinesia
     Route: 065
  22. CLOBAZAM [Suspect]
     Active Substance: CLOBAZAM
     Indication: Dystonia
  23. DANTROLENE [Suspect]
     Active Substance: DANTROLENE
     Indication: Tardive dyskinesia
     Route: 065
  24. DANTROLENE [Suspect]
     Active Substance: DANTROLENE
     Indication: Dystonia
  25. BUSPIRONE [Suspect]
     Active Substance: BUSPIRONE HYDROCHLORIDE
     Indication: Tardive dyskinesia
     Route: 065
  26. BUSPIRONE [Suspect]
     Active Substance: BUSPIRONE HYDROCHLORIDE
     Indication: Dystonia
  27. BOTULINUM TOXIN NOS [Suspect]
     Active Substance: BOTULINUM TOXIN NOS
     Indication: Tardive dyskinesia
     Route: 065
  28. BOTULINUM TOXIN NOS [Suspect]
     Active Substance: BOTULINUM TOXIN NOS
     Indication: Dystonia
  29. MIRTAZAPINE [Concomitant]
     Active Substance: MIRTAZAPINE
     Indication: Antidepressant therapy
     Route: 065
  30. FLUOXETINE [Concomitant]
     Active Substance: FLUOXETINE HYDROCHLORIDE
     Indication: Antidepressant therapy
     Route: 065
  31. TRIMIPRAMINE [Concomitant]
     Active Substance: TRIMIPRAMINE
     Indication: Antidepressant therapy
     Route: 065

REACTIONS (3)
  - Tardive dyskinesia [Recovered/Resolved]
  - Dystonia [Recovered/Resolved]
  - Drug ineffective [Unknown]
